FAERS Safety Report 7932388-9 (Version None)
Quarter: 2011Q4

REPORT INFORMATION
  Report Type: 
  Country: None (occurrence: None)
  Receive Date: 20111122
  Receipt Date: 20111114
  Transmission Date: 20120403
  Serious: Yes (Other)
  Sender: FDA-Public Use
  Company Number: US-BRISTOL-MYERS SQUIBB COMPANY-16230518

PATIENT
  Age: 55 Year
  Sex: Male

DRUGS (3)
  1. COMBIVIR [Concomitant]
     Dosage: 1DF:150/300MG 1 BID .
  2. SUSTIVA [Suspect]
     Indication: HIV INFECTION
  3. VIREAD [Concomitant]

REACTIONS (1)
  - WEIGHT INCREASED [None]
